FAERS Safety Report 7202010 (Version 5)
Quarter: 2012Q4

REPORT INFORMATION
  Report Type: 
  Country: US (occurrence: US)
  Receive Date: 20091207
  Receipt Date: 20120829
  Transmission Date: 20130627
  Serious: Yes (Hospitalization, Other)
  Sender: FDA-Public Use
  Company Number: US-BAYER-200941495NA

PATIENT
  Age: 49 Year
  Sex: Female
  Weight: 65 kg

DRUGS (18)
  1. YAZ [Suspect]
     Indication: MENORRHAGIA
     Dosage: UNK UNK, QD
     Route: 048
     Dates: start: 200708, end: 200708
  2. YASMIN [Suspect]
     Indication: MENORRHAGIA
     Dosage: UNK UNK, QD
     Dates: start: 200702, end: 200708
  3. SYNTHROID [Concomitant]
     Indication: AUTOIMMUNE THYROIDITIS
     Dosage: 0.88 mg, QD
     Route: 048
     Dates: start: 1985
  4. SYNTHROID [Concomitant]
     Indication: HYPOTHYROIDISM
  5. TRAZODONE [Concomitant]
     Indication: FIBROMYALGIA
     Dosage: 50 mg, QD
     Route: 048
     Dates: start: 2002, end: 2007
  6. TRAZODONE [Concomitant]
     Indication: FIBROMYALGIA
     Dates: start: 2007
  7. CLARITIN [Concomitant]
     Indication: HYPERSENSITIVITY
     Dates: start: 2005
  8. CLARITIN [Concomitant]
     Indication: SEASONAL ALLERGY
  9. ALLEGRA-D [Concomitant]
     Indication: HYPERSENSITIVITY
     Dates: start: 2005
  10. ALLEGRA-D [Concomitant]
     Indication: SEASONAL ALLERGY
  11. CLARINEX [DESLORATADINE] [Concomitant]
     Dosage: 5 mg, QD
     Route: 048
  12. CELEBREX [Concomitant]
     Dosage: 200 mg, UNK
     Route: 048
  13. PROTONIX [Concomitant]
     Dosage: 40 mg, UNK
     Route: 048
  14. PHENERGAN [Concomitant]
  15. DARVOCET [Concomitant]
  16. RESPIRATORY SYSTEM [Concomitant]
     Dosage: UNK UNK, CONT
  17. FIORICET [Concomitant]
     Dosage: [1] q 4-6 prn (interpreted as every 4-6 hours as needed)UNK
     Dates: start: 20070405, end: 20070823
  18. FLONASE [Concomitant]
     Dosage: UNK
     Dates: start: 20070405, end: 20070823

REACTIONS (13)
  - Pulmonary embolism [None]
  - Back pain [None]
  - Deep vein thrombosis [None]
  - Pain in extremity [None]
  - Muscle spasms [None]
  - Pain [None]
  - Injury [None]
  - Venous insufficiency [None]
  - Superficial vein prominence [None]
  - Dysstasia [None]
  - Gait disturbance [None]
  - Headache [Unknown]
  - Sluggishness [Unknown]
